FAERS Safety Report 14298890 (Version 1)
Quarter: 2017Q4

REPORT INFORMATION
  Report Type: Spontaneous
  Country: US (occurrence: US)
  Receive Date: 20171216
  Receipt Date: 20171216
  Transmission Date: 20180321
  Serious: No
  Sender: FDA-Public Use
  Company Number: None

PATIENT
  Age: 30 Year
  Sex: Male

DRUGS (1)
  1. COSENTYX [Suspect]
     Active Substance: SECUKINUMAB
     Dosage: 150MG/ML 150MG Q4 WE SQ
     Route: 058
     Dates: start: 20170615

REACTIONS (2)
  - Manufacturing product shipping issue [None]
  - Drug dose omission [None]

NARRATIVE: CASE EVENT DATE: 20171216
